FAERS Safety Report 22092931 (Version 2)
Quarter: 2023Q1

REPORT INFORMATION
  Report Type: Spontaneous
  Country: US (occurrence: US)
  Receive Date: 20230314
  Receipt Date: 20230327
  Transmission Date: 20230417
  Serious: Yes (Other)
  Sender: FDA-Public Use
  Company Number: US-002147023-NVSC2023US054120

PATIENT
  Age: 3 Year
  Sex: Female

DRUGS (27)
  1. CARBOPLATIN [Suspect]
     Active Substance: CARBOPLATIN
     Indication: Ganglioneuroma
     Dosage: 250 MG/M2, DAYS 1-3, CYCLIC (1ST CYCLE) (TOTAL 9 CYCLES)
     Route: 042
     Dates: start: 20110728
  2. CARBOPLATIN [Suspect]
     Active Substance: CARBOPLATIN
     Dosage: 250 MG/M2, DAYS 1-3, CYCLIC (2ND CYCLE) (TOTAL 9 CYCLES)
     Route: 042
     Dates: start: 20110822
  3. CARBOPLATIN [Suspect]
     Active Substance: CARBOPLATIN
     Dosage: 250 MG/M2, DAYS 1-3, CYCLIC (3RD CYCLE) (TOTAL 9 CYCLES)
     Route: 042
     Dates: start: 20110919
  4. CARBOPLATIN [Suspect]
     Active Substance: CARBOPLATIN
     Dosage: 250 MG/M2, DAYS 1-3, CYCLIC (4TH CYCLE) (TOTAL 9 CYCLES)
     Route: 042
     Dates: start: 20111024
  5. CARBOPLATIN [Suspect]
     Active Substance: CARBOPLATIN
     Dosage: 250 MG/M2, DAYS 1-3, CYCLIC (5TH CYCLE) (TOTAL 9 CYCLES)
     Route: 042
     Dates: start: 20111117
  6. CARBOPLATIN [Suspect]
     Active Substance: CARBOPLATIN
     Dosage: 250 MG/M2, DAYS 1-3, CYCLIC (6TH CYCLE) (TOTAL 9 CYCLES)
     Route: 042
     Dates: start: 20111219
  7. CARBOPLATIN [Suspect]
     Active Substance: CARBOPLATIN
     Dosage: 250 MG/M2, DAYS 1-3, CYCLIC (7TH CYCLE) (TOTAL 9 CYCLES)
     Route: 042
     Dates: start: 20120116
  8. CARBOPLATIN [Suspect]
     Active Substance: CARBOPLATIN
     Dosage: UNK, CYCLIC (8TH CYCLE) (TOTAL 9 CYCLES)
     Route: 065
  9. CARBOPLATIN [Suspect]
     Active Substance: CARBOPLATIN
     Dosage: UNK, CYCLIC (9TH CYCLE) (TOTAL 9 CYCLES)
     Route: 065
  10. TOPOTECAN [Suspect]
     Active Substance: TOPOTECAN HYDROCHLORIDE
     Indication: Ganglioneuroma
     Dosage: 0.5 MG/M2, DAYS 1-3, CYCLIC (1ST CYCLE) (TOTAL 9 CYCLES)
     Route: 042
     Dates: start: 20110728
  11. TOPOTECAN [Suspect]
     Active Substance: TOPOTECAN HYDROCHLORIDE
     Dosage: 0.5 MG/M2, DAYS 1-3, CYCLIC (2ND CYCLE) (TOTAL 9 CYCLES)
     Route: 042
     Dates: start: 20110822
  12. TOPOTECAN [Suspect]
     Active Substance: TOPOTECAN HYDROCHLORIDE
     Dosage: 0.5 MG/M2, DAYS 1-3, CYCLIC (3RD CYCLE) (TOTAL 9 CYCLES)
     Route: 042
     Dates: start: 20110919
  13. TOPOTECAN [Suspect]
     Active Substance: TOPOTECAN HYDROCHLORIDE
     Dosage: 0.5 MG/M2, DAYS 1-3, CYCLIC (4TH CYCLE) (TOTAL 9 CYCLES)
     Route: 042
     Dates: start: 20111024
  14. TOPOTECAN [Suspect]
     Active Substance: TOPOTECAN HYDROCHLORIDE
     Dosage: 0.5 MG/M2, DAYS 1-3, CYCLIC (5TH CYCLE) (TOTAL 9 CYCLES)
     Route: 042
     Dates: start: 20111117
  15. TOPOTECAN [Suspect]
     Active Substance: TOPOTECAN HYDROCHLORIDE
     Dosage: 0.5 MG/M2, DAYS 1-3, CYCLIC (6TH CYCLE) (TOTAL 9 CYCLES)
     Route: 042
     Dates: start: 20111219
  16. TOPOTECAN [Suspect]
     Active Substance: TOPOTECAN HYDROCHLORIDE
     Dosage: 0.5 MG/M2, DAYS 1-3, CYCLIC (7TH CYCLE) (TOTAL 9 CYCLES)
     Route: 042
     Dates: start: 20120116
  17. TOPOTECAN [Suspect]
     Active Substance: TOPOTECAN HYDROCHLORIDE
     Dosage: UNK, CYCLIC (8TH CYCLE) (TOTAL 9 CYCLES)
     Route: 065
  18. TOPOTECAN [Suspect]
     Active Substance: TOPOTECAN HYDROCHLORIDE
     Dosage: UNK, CYCLIC (9TH CYCLE) (TOTAL 9 CYCLES)
     Route: 065
  19. IFOSFAMIDE [Suspect]
     Active Substance: IFOSFAMIDE
     Indication: Ganglioneuroma
     Dosage: 1800 MG/M2, DAYS 1-5, CYCLIC (1ST CYCLE) (TOTAL 9 CYCLES)
     Route: 042
     Dates: start: 20110728
  20. IFOSFAMIDE [Suspect]
     Active Substance: IFOSFAMIDE
     Dosage: 1800 MG/M2, DAYS 1-5, CYCLIC (2ND CYCLE) (TOTAL 9 CYCLES)
     Route: 042
     Dates: start: 20110822
  21. IFOSFAMIDE [Suspect]
     Active Substance: IFOSFAMIDE
     Dosage: 1800 MG/M2, DAYS 1-5, CYCLIC (3RD CYCLE) (TOTAL 9 CYCLES)
     Route: 042
     Dates: start: 20110919
  22. IFOSFAMIDE [Suspect]
     Active Substance: IFOSFAMIDE
     Dosage: 1800 MG/M2, DAYS 1-5, CYCLIC 4TH CYCLE) (TOTAL 9 CYCLES)
     Route: 042
     Dates: start: 20111024
  23. IFOSFAMIDE [Suspect]
     Active Substance: IFOSFAMIDE
     Dosage: 1800 MG/M2, DAYS 1-5, CYCLIC 5TH CYCLE) (TOTAL 9 CYCLES)
     Route: 042
     Dates: start: 20111117
  24. IFOSFAMIDE [Suspect]
     Active Substance: IFOSFAMIDE
     Dosage: 1800 MG/M2, DAYS 1-5, CYCLIC 6TH CYCLE) (TOTAL 9 CYCLES)
     Route: 042
     Dates: start: 20111219
  25. IFOSFAMIDE [Suspect]
     Active Substance: IFOSFAMIDE
     Dosage: 1800 MG/M2, DAYS 1-5, CYCLIC 7TH CYCLE) (TOTAL 9 CYCLES)
     Route: 042
     Dates: start: 20120116
  26. IFOSFAMIDE [Suspect]
     Active Substance: IFOSFAMIDE
     Dosage: UNKUNK, CYCLIC (8TH CYCLE) (TOTAL 9 CYCLES)
     Route: 065
  27. IFOSFAMIDE [Suspect]
     Active Substance: IFOSFAMIDE
     Dosage: UNK, CYCLIC (9TH CYCLE) (TOTAL 9 CYCLES)
     Route: 065

REACTIONS (7)
  - Febrile neutropenia [Unknown]
  - Pancytopenia [Unknown]
  - Cellulitis [Unknown]
  - Mucosal inflammation [Unknown]
  - Drug ineffective [Unknown]
  - Product use in unapproved indication [Unknown]
  - Product use issue [Unknown]

NARRATIVE: CASE EVENT DATE: 20110811
